FAERS Safety Report 7552924-4 (Version None)
Quarter: 2011Q2

REPORT INFORMATION
  Report Type: 
  Country: None (occurrence: None)
  Receive Date: 20110616
  Receipt Date: 20100920
  Transmission Date: 20111010
  Serious: No
  Sender: FDA-Public Use
  Company Number: US-ASTRAZENECA-2010SE44289

PATIENT
  Age: 66 Year
  Sex: Female
  Weight: 90.7 kg

DRUGS (2)
  1. ZOMETA [Concomitant]
  2. FASLODEX [Suspect]
     Indication: BREAST CANCER METASTATIC
     Route: 030
     Dates: start: 20091001

REACTIONS (2)
  - INJECTION SITE SWELLING [None]
  - SENSORY DISTURBANCE [None]
